FAERS Safety Report 17298347 (Version 1)
Quarter: 2020Q1

REPORT INFORMATION
  Report Type: Spontaneous
  Country: US (occurrence: US)
  Receive Date: 20200122
  Receipt Date: 20200122
  Transmission Date: 20200409
  Serious: Yes (Hospitalization)
  Sender: FDA-Public Use
  Company Number: US-ROCHE-2529309

PATIENT
  Sex: Male

DRUGS (1)
  1. ESBRIET [Suspect]
     Active Substance: PIRFENIDONE
     Indication: IDIOPATHIC PULMONARY FIBROSIS
     Dosage: TAKE 1 CAPSULE 3 TIMES DAILY FOR 1 WEEK, THEN 2 CAPS 3 TIMES DAILY FOR 1 WEEK , THEN 3 CAPS 3 TIMES
     Route: 048
     Dates: start: 20200107

REACTIONS (3)
  - Pneumonia [Unknown]
  - Depression [Unknown]
  - Insomnia [Unknown]
